FAERS Safety Report 10627214 (Version 1)
Quarter: 2014Q4

REPORT INFORMATION
  Report Type: Spontaneous
  Country: US (occurrence: US)
  Receive Date: 20141204
  Receipt Date: 20141204
  Transmission Date: 20150529
  Serious: Yes (Death, Hospitalization, Other)
  Sender: FDA-Public Use
  Company Number: US-GLAXOSMITHKLINE-US2014GSK030863

PATIENT
  Sex: Male

DRUGS (2)
  1. ROSIGLITAZONE MALEATE. [Suspect]
     Active Substance: ROSIGLITAZONE MALEATE
     Indication: DIABETES MELLITUS
     Dosage: 8 MG, UNK
     Route: 048
     Dates: start: 20030303, end: 20060421
  2. AVANDIA [Suspect]
     Active Substance: ROSIGLITAZONE MALEATE
     Indication: DIABETES MELLITUS
     Dosage: UNK
     Route: 048
     Dates: start: 20060826, end: 20061225

REACTIONS (9)
  - Chronic obstructive pulmonary disease [Fatal]
  - Atrial fibrillation [Unknown]
  - Retroperitoneal haemorrhage [Fatal]
  - Mitral valve incompetence [Unknown]
  - Angina pectoris [Unknown]
  - Pleural effusion [Unknown]
  - Cardiac failure congestive [Fatal]
  - Coronary artery disease [Unknown]
  - Peripheral vascular disorder [Unknown]
